FAERS Safety Report 4333241-2 (Version None)
Quarter: 2004Q2

REPORT INFORMATION
  Report Type: 
  Country: None (occurrence: None)
  Receive Date: 20040406
  Receipt Date: 20040318
  Transmission Date: 20050107
  Serious: Yes (Other)
  Sender: FDA-Public Use
  Company Number: DE-BRISTOL-MYERS SQUIBB COMPANY-12536512

PATIENT
  Age: 65 Year

DRUGS (3)
  1. CARBOPLATIN [Suspect]
     Indication: NON-SMALL CELL LUNG CANCER
     Dosage: DOSE = AUC 6
     Route: 042
  2. PACLITAXEL [Suspect]
     Indication: NON-SMALL CELL LUNG CANCER
     Route: 042
  3. TARGRETIN [Suspect]
     Indication: NON-SMALL CELL LUNG CANCER
     Route: 048

REACTIONS (1)
  - LUNG INFILTRATION [None]
